FAERS Safety Report 7494268-5 (Version None)
Quarter: 2011Q2

REPORT INFORMATION
  Report Type: 
  Country: None (occurrence: None)
  Receive Date: 20110520
  Receipt Date: 20110511
  Transmission Date: 20111010
  Serious: Yes (Disabling, Other)
  Sender: FDA-Public Use
  Company Number: US-B.I. PHARMACEUTICALS,INC./RIDGEFIELD-2011-BP-12993PF

PATIENT
  Sex: Male

DRUGS (11)
  1. SPIRIVA [Suspect]
     Indication: CHRONIC OBSTRUCTIVE PULMONARY DISEASE
     Dosage: 80 MCG
  2. PROZAC [Suspect]
  3. ZETIA [Suspect]
     Indication: CARDIAC DISORDER
  4. LIPITOR [Suspect]
     Indication: BLOOD CHOLESTEROL INCREASED
     Dosage: 40 MG
  5. ASPIRIN [Suspect]
     Indication: CARDIAC DISORDER
  6. ARFORMOTEROL TARTRATE [Suspect]
     Indication: CHRONIC OBSTRUCTIVE PULMONARY DISEASE
  7. KLONOPIN [Suspect]
  8. PULMICORT [Suspect]
     Indication: CHRONIC OBSTRUCTIVE PULMONARY DISEASE
  9. TOPROL-XL [Suspect]
     Indication: CARDIAC DISORDER
  10. ALBUTEROL SULFATE [Suspect]
     Indication: CHRONIC OBSTRUCTIVE PULMONARY DISEASE
  11. PREDNISONE [Suspect]
     Indication: EMPHYSEMA

REACTIONS (6)
  - GAIT DISTURBANCE [None]
  - EXERCISE TOLERANCE DECREASED [None]
  - MUSCULAR WEAKNESS [None]
  - DIABETES MELLITUS [None]
  - PARAESTHESIA [None]
  - MUSCLE DISORDER [None]
